FAERS Safety Report 4919865-X (Version None)
Quarter: 2006Q1

REPORT INFORMATION
  Report Type: 
  Country: None (occurrence: None)
  Receive Date: 20060221
  Receipt Date: 20060221
  Transmission Date: 20060701
  Serious: Yes (Death)
  Sender: FDA-Public Use
  Company Number: None

PATIENT
  Sex: Female
  Weight: 82 kg

DRUGS (6)
  1. FLUOROURACIL [Suspect]
     Indication: COLON CANCER
     Dosage: 5208 MG
     Dates: end: 20060125
  2. LEUCOVORIN CALCIUM [Suspect]
     Dosage: 744 MG
     Dates: end: 20060125
  3. ELOXATIN [Suspect]
     Dosage: 158 MG
     Dates: end: 20060125
  4. COZAAR [Concomitant]
  5. FOSAMAX [Concomitant]
  6. VERAPAMIL [Concomitant]

REACTIONS (2)
  - CARDIO-RESPIRATORY ARREST [None]
  - PULMONARY EMBOLISM [None]
